FAERS Safety Report 4341352-0 (Version None)
Quarter: 2004Q2

REPORT INFORMATION
  Report Type: 
  Country: None (occurrence: None)
  Receive Date: 20040408
  Receipt Date: 20030702
  Transmission Date: 20050107
  Serious: Yes (Hospitalization, Disabling)
  Sender: FDA-Public Use
  Company Number: HQ3556323JUL2001

PATIENT
  Age: 34 Year
  Sex: Female

DRUGS (3)
  1. OVRAL [Suspect]
     Indication: MENSTRUATION IRREGULAR
     Dosage: 1 TABLET 1X PER 1 DAY, ORAL
     Route: 048
     Dates: start: 19790301, end: 19790501
  2. UNSPECIFIED THYROID MEDICATION (UNSPECIFIED THYROID MEDICATION) [Concomitant]
  3. INDERAL [Concomitant]

REACTIONS (2)
  - CEREBRAL INFARCTION [None]
  - HEADACHE [None]
